FAERS Safety Report 4910415-0 (Version None)
Quarter: 2006Q1

REPORT INFORMATION
  Report Type: 
  Country: None (occurrence: None)
  Receive Date: 20060209
  Receipt Date: 20060124
  Transmission Date: 20060701
  Serious: Yes (Hospitalization)
  Sender: FDA-Public Use
  Company Number: 2006000205

PATIENT
  Age: 77 Year
  Sex: Male

DRUGS (10)
  1. ERLOTINIB HCL (TABLET) [Suspect]
     Indication: LUNG NEOPLASM MALIGNANT
     Dosage: 100 MG (QD), ORAL
     Route: 048
     Dates: start: 20050110, end: 20051221
  2. PACLITAXEL [Suspect]
     Dosage: 100 MG (Q WK), INTRAVENOUS
     Route: 042
     Dates: start: 20030902, end: 20030917
  3. CARBOPLATIN [Suspect]
     Dosage: 512 MG (Q WK)
     Dates: start: 20030902, end: 20030917
  4. HYDROCHLOROTHIAZIDE [Concomitant]
  5. MONOPRIL [Concomitant]
  6. K-DUR 10 [Concomitant]
  7. WARFARIN SODIUM [Concomitant]
  8. TOPROL-XL [Concomitant]
  9. NEXIUM [Concomitant]
  10. SIMVASTATIN [Concomitant]

REACTIONS (15)
  - ALANINE AMINOTRANSFERASE INCREASED [None]
  - ASPARTATE AMINOTRANSFERASE INCREASED [None]
  - BLOOD ALKALINE PHOSPHATASE INCREASED [None]
  - BLOOD BILIRUBIN INCREASED [None]
  - CHOLELITHIASIS [None]
  - HAEMANGIOMA [None]
  - HAEMOGLOBIN DECREASED [None]
  - INTERNATIONAL NORMALISED RATIO INCREASED [None]
  - LIPASE INCREASED [None]
  - LUNG CANCER METASTATIC [None]
  - MASS [None]
  - PERITONEAL DISORDER [None]
  - PLATELET COUNT DECREASED [None]
  - RED BLOOD CELL COUNT DECREASED [None]
  - SPLEEN DISORDER [None]
